FAERS Safety Report 7887869-3 (Version None)
Quarter: 2011Q4

REPORT INFORMATION
  Report Type: 
  Country: None (occurrence: None)
  Receive Date: 20111103
  Receipt Date: 20111103
  Transmission Date: 20120403
  Serious: Yes (Life-Threatening, Hospitalization, Disabling, Other)
  Sender: FDA-Public Use
  Company Number: None

PATIENT
  Age: 35 Year
  Sex: Female
  Weight: 90.718 kg

DRUGS (4)
  1. RISPERDAL CONSTA [Concomitant]
     Indication: BIPOLAR DISORDER
     Dosage: 50
     Route: 030
     Dates: start: 20041013, end: 20090515
  2. RISPERDAL CONSTA [Concomitant]
     Indication: PSYCHOTIC DISORDER
     Dosage: 50
     Route: 030
     Dates: start: 20041013, end: 20090515
  3. RISPERDAL [Suspect]
     Indication: BIPOLAR DISORDER
     Dosage: 2MG
     Route: 048
     Dates: start: 19950407, end: 20110714
  4. RISPERDAL [Suspect]
     Indication: PSYCHOTIC DISORDER
     Dosage: 2MG
     Route: 048
     Dates: start: 19950407, end: 20110714

REACTIONS (1)
  - HEPATITIS C [None]
